FAERS Safety Report 15764069 (Version 14)
Quarter: 2025Q4

REPORT INFORMATION
  Report Type: Report from Study
  Country: JP (occurrence: JP)
  Receive Date: 20181227
  Receipt Date: 20251111
  Transmission Date: 20260118
  Serious: Yes (Hospitalization, Other)
  Sender: CHIESI
  Company Number: None

PATIENT
  Age: 58 Year
  Sex: Male
  Weight: 63 kg

DRUGS (20)
  1. LOMITAPIDE [Suspect]
     Active Substance: LOMITAPIDE
     Indication: Type IIa hyperlipidaemia
     Dosage: 5 MG, QD, THE PATIENT TOOK JUXTAPID 2 HOURS AFTER DINNER
     Dates: start: 20171226, end: 20180319
  2. LOMITAPIDE [Suspect]
     Active Substance: LOMITAPIDE
     Dosage: 10 MILLIGRAM, QD
     Dates: start: 20180320, end: 20200413
  3. LOMITAPIDE [Suspect]
     Active Substance: LOMITAPIDE
     Dosage: 10 MILLIGRAM, QD
     Dates: start: 20200413, end: 20200414
  4. LOMITAPIDE [Suspect]
     Active Substance: LOMITAPIDE
     Dosage: 10 MG, QOD
     Dates: start: 20200428, end: 20200511
  5. LOMITAPIDE [Suspect]
     Active Substance: LOMITAPIDE
     Dosage: 10 MILLIGRAM, QD
     Dates: start: 20200512
  6. LOMITAPIDE [Suspect]
     Active Substance: LOMITAPIDE
     Dosage: 20 MILLIGRAM, QD
     Dates: start: 20241126, end: 20241219
  7. LOMITAPIDE [Suspect]
     Active Substance: LOMITAPIDE
     Dosage: 40 MILLIGRAM, QD
     Dates: start: 20241224, end: 20250109
  8. LOMITAPIDE [Suspect]
     Active Substance: LOMITAPIDE
     Dosage: 20 MILLIGRAM, QD
     Dates: start: 20250121
  9. INCLISIRAN [Suspect]
     Active Substance: INCLISIRAN
     Indication: Product used for unknown indication
     Dosage: UNK
  10. CRESTOR [Concomitant]
     Active Substance: ROSUVASTATIN CALCIUM
     Indication: Hypercholesterolaemia
     Dosage: 10 MG, BID
  11. ZETIA [Concomitant]
     Active Substance: EZETIMIBE
     Indication: Hypercholesterolaemia
     Dosage: 10 MG, QD
  12. ICOSAPENT ETHYL [Concomitant]
     Active Substance: ICOSAPENT ETHYL
     Indication: Hypercholesterolaemia
  13. REPATHA [Concomitant]
     Active Substance: EVOLOCUMAB
     Indication: Hypercholesterolaemia
     Dosage: 420 MG, 1 IN 1M
  14. ASPIRIN [Concomitant]
     Active Substance: ASPIRIN
     Indication: Angina pectoris
  15. RABEPRAZOLE SODIUM [Concomitant]
     Active Substance: RABEPRAZOLE SODIUM
     Indication: Prophylaxis
  16. NICORANDIL [Concomitant]
     Active Substance: NICORANDIL
     Indication: Angina pectoris
     Dosage: UNK
     Dates: start: 20180417
  17. PRASUGREL HYDROCHLORIDE [Concomitant]
     Active Substance: PRASUGREL HYDROCHLORIDE
     Indication: Angina pectoris
     Dosage: UNK
     Dates: start: 20180511
  18. PRASUGREL HYDROCHLORIDE [Concomitant]
     Active Substance: PRASUGREL HYDROCHLORIDE
     Indication: Coronary arterial stent insertion
  19. ADALAT [Concomitant]
     Active Substance: NIFEDIPINE
     Indication: Hypertension
     Dosage: UNK
     Dates: start: 20171219
  20. EVOLOCUMAB [Concomitant]
     Active Substance: EVOLOCUMAB
     Indication: Product used for unknown indication
     Dosage: UNK

REACTIONS (13)
  - Cerebral infarction [Recovered/Resolved]
  - Ultrasound liver abnormal [Unknown]
  - Carotid artery stenosis [Recovered/Resolved]
  - Cerebral infarction [Recovering/Resolving]
  - Angina pectoris [Recovered/Resolved]
  - Off label use [Unknown]
  - Speech disorder [Unknown]
  - Gastrointestinal disorder [Recovered/Resolved]
  - Hepatic function abnormal [Recovered/Resolved]
  - Hepatic function abnormal [Recovered/Resolved]
  - Hepatic function abnormal [Recovered/Resolved]
  - Diarrhoea [Recovered/Resolved]
  - Therapeutic product effect incomplete [Unknown]

NARRATIVE: CASE EVENT DATE: 20171228
